FAERS Safety Report 19062654 (Version 3)
Quarter: 2021Q4

REPORT INFORMATION
  Report Type: Report from Study
  Country: NL (occurrence: NL)
  Receive Date: 20210326
  Receipt Date: 20211125
  Transmission Date: 20220303
  Serious: Yes (Hospitalization, Other)
  Sender: FDA-Public Use
  Company Number: NL-ALNYLAM PHARMACEUTICALS, INC.-ALN-2020-000609

PATIENT

DRUGS (43)
  1. AMLODIPINE BESYLATE [Suspect]
     Active Substance: AMLODIPINE BESYLATE
     Indication: Hypertension
     Dosage: 10 MG, 1X/DAY
     Route: 048
     Dates: start: 20191126, end: 20201228
  2. LISINOPRIL [Suspect]
     Active Substance: LISINOPRIL
     Dosage: 5 MG, 1X/DAY
     Dates: start: 20201228, end: 20210111
  3. GIVLAARI [Suspect]
     Active Substance: GIVOSIRAN SODIUM
     Indication: Porphyria acute
     Dosage: 179.5 MG, SINGLE
     Route: 058
     Dates: start: 20200323, end: 20200323
  4. GIVLAARI [Suspect]
     Active Substance: GIVOSIRAN SODIUM
     Dosage: 175.25 MG, SINGLE
     Route: 058
     Dates: start: 20200420, end: 20200420
  5. GIVLAARI [Suspect]
     Active Substance: GIVOSIRAN SODIUM
     Dosage: 173.5 MG, SINGLE
     Route: 058
     Dates: start: 20200518, end: 20200518
  6. GIVLAARI [Suspect]
     Active Substance: GIVOSIRAN SODIUM
     Dosage: 178.5 MG, MONTHLY
     Route: 058
     Dates: start: 20200615, end: 20200615
  7. GIVLAARI [Suspect]
     Active Substance: GIVOSIRAN SODIUM
     Dosage: 179.5 MG, SINGLE
     Route: 058
     Dates: start: 20200713
  8. GIVLAARI [Suspect]
     Active Substance: GIVOSIRAN SODIUM
     Dosage: 181.5 MG, MONTHLY
     Route: 058
     Dates: start: 20201005
  9. GIVLAARI [Suspect]
     Active Substance: GIVOSIRAN SODIUM
     Dosage: 184 MG, MONTHLY
     Route: 058
     Dates: start: 20201228, end: 20201228
  10. GIVLAARI [Suspect]
     Active Substance: GIVOSIRAN SODIUM
     Dosage: 186.3 MG, MONTHLY
     Route: 058
     Dates: start: 20210125, end: 20210125
  11. GIVLAARI [Suspect]
     Active Substance: GIVOSIRAN SODIUM
     Dosage: 182.5 MG, MONTHLY
     Route: 058
     Dates: start: 20210222
  12. GIVLAARI [Suspect]
     Active Substance: GIVOSIRAN SODIUM
     Dosage: 186.5 MG, MONTHLY
     Route: 058
  13. GIVLAARI [Suspect]
     Active Substance: GIVOSIRAN SODIUM
     Dosage: 186.5 MG, MONTHLY
     Route: 058
  14. GIVLAARI [Suspect]
     Active Substance: GIVOSIRAN SODIUM
     Dosage: 186.3 MG, MONTHLY
     Route: 058
  15. GIVLAARI [Suspect]
     Active Substance: GIVOSIRAN SODIUM
     Dosage: 182 MG, SINGLE (WEIGHT 71.5 KG)
     Route: 058
     Dates: start: 20210419, end: 20210419
  16. GIVLAARI [Suspect]
     Active Substance: GIVOSIRAN SODIUM
     Dosage: 179.3 MG, SINGLE (WEIGHT 72.8 KG)
     Route: 058
     Dates: start: 20210322, end: 20210322
  17. GIVLAARI [Suspect]
     Active Substance: GIVOSIRAN SODIUM
     Dosage: 178.8 MG, MONTHLY (WEIGHT 72.1 KG)
     Route: 058
     Dates: start: 20210517, end: 20210517
  18. GIVLAARI [Suspect]
     Active Substance: GIVOSIRAN SODIUM
     Dosage: 180.3 MG, SINGLE, MONTHLY, WEIGHT 73.2 KG
     Route: 058
     Dates: start: 20210621, end: 20210621
  19. GIVLAARI [Suspect]
     Active Substance: GIVOSIRAN SODIUM
     Dosage: 180 MG, SINGLE, MONTHLY, WEIGHT 72.1 KG
     Route: 058
     Dates: start: 20210803, end: 20210803
  20. GIVLAARI [Suspect]
     Active Substance: GIVOSIRAN SODIUM
     Dosage: 180 MG, SINGLE, MONTHLY, WEIGHT 73.0 KG
     Route: 058
     Dates: start: 20210913, end: 20210913
  21. GIVLAARI [Suspect]
     Active Substance: GIVOSIRAN SODIUM
     Dosage: 180 MG, SINGLE, MONTHLY, WEIGHT 75.2 KG
     Route: 058
     Dates: start: 20211101
  22. PROMETHAZINE [Suspect]
     Active Substance: PROMETHAZINE HYDROCHLORIDE
     Indication: Cough
     Dosage: UNK
  23. Multivitamin Dienet [Concomitant]
     Indication: Hypovitaminosis
     Dosage: UNK UNK, 1X/DAY
     Route: 048
     Dates: start: 20200204
  24. Multivitamin Dienet [Concomitant]
     Indication: Supplementation therapy
  25. DEFERASIROX [Concomitant]
     Active Substance: DEFERASIROX
     Indication: Iron overload
     Dosage: 720 MG, 1X/DAY
     Route: 048
     Dates: start: 20191209
  26. DEFERASIROX [Concomitant]
     Active Substance: DEFERASIROX
     Dosage: 360 MG, 1X/DAY
     Route: 048
     Dates: start: 20200709
  27. OMEPRAZOLE [Concomitant]
     Active Substance: OMEPRAZOLE
     Indication: Reflux gastritis
     Dosage: 40 MG, AS NEEDED
     Route: 048
     Dates: start: 20200622, end: 20200811
  28. OMEPRAZOLE [Concomitant]
     Active Substance: OMEPRAZOLE
     Dosage: 20 MG EVERY OTHER DAY
     Route: 048
     Dates: start: 20200811, end: 20210222
  29. OMEPRAZOLE [Concomitant]
     Active Substance: OMEPRAZOLE
     Dosage: 20 MG, 2X/DAY
     Route: 048
     Dates: start: 20210222
  30. OMEPRAZOLE [Concomitant]
     Active Substance: OMEPRAZOLE
     Dosage: 20 MG, 1X/DAY
     Route: 048
  31. POLYETHYLENE GLYCOL 3350\POTASSIUM CHLORIDE\SODIUM BICARBONATE\SODIUM [Concomitant]
     Active Substance: POLYETHYLENE GLYCOL 3350\POTASSIUM CHLORIDE\SODIUM BICARBONATE\SODIUM CHLORIDE
     Indication: Constipation
     Dosage: 13.8 G, 1X/DAY
     Route: 048
  32. METOPROLOL [Concomitant]
     Active Substance: METOPROLOL
     Indication: Hypertension
     Dosage: 50 MG, 1X/DAY
     Route: 048
     Dates: start: 20191209, end: 20200715
  33. METOPROLOL [Concomitant]
     Active Substance: METOPROLOL
     Dosage: 100 MG, 1X/DAY
     Route: 048
     Dates: start: 20200715
  34. METOPROLOL [Concomitant]
     Active Substance: METOPROLOL
     Dosage: 100 MG, 1X/DAY
     Route: 048
     Dates: start: 20210111, end: 20210913
  35. METOPROLOL [Concomitant]
     Active Substance: METOPROLOL
     Dosage: 200 MG, 1X/DAY
     Route: 048
     Dates: start: 20210913
  36. HYDROXYUREA [Concomitant]
     Active Substance: HYDROXYUREA
     Indication: Porphyria acute
     Dosage: 1000 MG, 1X/DAY
     Route: 048
     Dates: start: 20191129, end: 20200723
  37. HYDROXYUREA [Concomitant]
     Active Substance: HYDROXYUREA
     Dosage: 1500 MG
     Route: 048
     Dates: start: 20200723
  38. HYDROXYUREA [Concomitant]
     Active Substance: HYDROXYUREA
     Dosage: 1000 MG, 1X/DAY
     Route: 048
     Dates: start: 20210304, end: 20210311
  39. TERIPARATIDE [Concomitant]
     Active Substance: TERIPARATIDE
     Indication: Osteoporosis
     Dosage: 20 UG, 1X/DAY FOR 24 MONTHS
     Dates: start: 202102
  40. HYDROXYUREA [Concomitant]
     Active Substance: HYDROXYUREA
     Dosage: 1000 MILLIGRAM, QD
     Route: 048
     Dates: start: 20191119, end: 20200723
  41. HYDROXYUREA [Concomitant]
     Active Substance: HYDROXYUREA
     Dosage: 1000 MILLIGRAM, QD
     Route: 048
     Dates: start: 20200723, end: 20210304
  42. HYDROXYUREA [Concomitant]
     Active Substance: HYDROXYUREA
     Dosage: 1000 MILLIGRAM, QD
     Route: 048
     Dates: start: 20210304, end: 20210311
  43. HYDROXYUREA [Concomitant]
     Active Substance: HYDROXYUREA
     Dosage: 500 MILLIGRAM, DAILY
     Route: 048
     Dates: start: 20210506

REACTIONS (47)
  - Abdominal pain [Recovered/Resolved]
  - Vomiting [Recovered/Resolved]
  - Pain in extremity [Not Recovered/Not Resolved]
  - Vomiting [Not Recovered/Not Resolved]
  - Somnolence [Recovered/Resolved]
  - Paraesthesia [Recovered/Resolved]
  - Fatigue [Recovered/Resolved]
  - Nausea [Recovered/Resolved]
  - Vomiting [Recovered/Resolved]
  - Platelet count decreased [Recovered/Resolved]
  - Nausea [Recovered/Resolved]
  - Leukopenia [Recovered/Resolved]
  - Oedema peripheral [Recovered/Resolved]
  - Abdominal pain lower [Recovered/Resolved]
  - Dyspepsia [Recovered/Resolved]
  - Vomiting [Recovered/Resolved]
  - Pain in extremity [Recovered/Resolved]
  - Vomiting [Recovered/Resolved]
  - Paraesthesia [Recovered/Resolved]
  - Rash [Not Recovered/Not Resolved]
  - Oedema peripheral [Recovered/Resolved]
  - Fatigue [Recovered/Resolved]
  - Malaise [Recovered/Resolved]
  - Vomiting [Recovered/Resolved]
  - Vomiting [Recovered/Resolved]
  - Abdominal pain [Recovered/Resolved]
  - Influenza [Recovered/Resolved]
  - Anaemia [Recovered/Resolved]
  - Porphyria acute [Not Recovered/Not Resolved]
  - Blood potassium increased [Not Recovered/Not Resolved]
  - Arthralgia [Recovered/Resolved]
  - Oral pain [Recovered/Resolved]
  - Aspiration [Not Recovered/Not Resolved]
  - Cough [Recovered/Resolved]
  - Cough [Recovered/Resolved]
  - Cough [Not Recovered/Not Resolved]
  - Ear pain [Recovered/Resolved]
  - Respiration abnormal [Recovered/Resolved]
  - Burning sensation [Recovered/Resolved]
  - Burning sensation [Recovered/Resolved]
  - Pain in jaw [Recovered/Resolved]
  - Injection site erythema [Recovered/Resolved]
  - Injection site pain [Recovered/Resolved]
  - Mouth ulceration [Recovered/Resolved]
  - Aspiration [Not Recovered/Not Resolved]
  - Urine delta aminolevulinate increased [Not Recovered/Not Resolved]
  - Renal failure [Recovered/Resolved]

NARRATIVE: CASE EVENT DATE: 20200323
